FAERS Safety Report 13395554 (Version 1)
Quarter: 2017Q2

REPORT INFORMATION
  Report Type: Spontaneous
  Country: US (occurrence: US)
  Receive Date: 20170402
  Receipt Date: 20170402
  Transmission Date: 20170830
  Serious: Yes (Hospitalization)
  Sender: FDA-Public Use
  Company Number: None

PATIENT
  Age: 63 Year
  Sex: Female
  Weight: 139.5 kg

DRUGS (14)
  1. MELOXICAM. [Concomitant]
     Active Substance: MELOXICAM
  2. LASIX [Concomitant]
     Active Substance: FUROSEMIDE
  3. ADVAIR DISKUS [Concomitant]
     Active Substance: FLUTICASONE PROPIONATE\SALMETEROL XINAFOATE
  4. METROPROLOL TARTRATE [Concomitant]
     Active Substance: METOPROLOL TARTRATE
  5. PAIN STIMULATOR [Concomitant]
  6. PRO AIR INHALER [Concomitant]
  7. IRON [Concomitant]
     Active Substance: IRON
  8. OXYBUTYNIN [Concomitant]
     Active Substance: OXYBUTYNIN
  9. CYMBALTA [Concomitant]
     Active Substance: DULOXETINE HYDROCHLORIDE
  10. TRAZODONE [Concomitant]
     Active Substance: TRAZODONE HYDROCHLORIDE
  11. MOVANTIK [Suspect]
     Active Substance: NALOXEGOL OXALATE
     Indication: CONSTIPATION
     Dosage: ?          QUANTITY:1 TABLET(S);?
     Route: 048
     Dates: start: 20170401, end: 20170402
  12. POTASSIUM [Concomitant]
     Active Substance: POTASSIUM
  13. ELIQUIS [Concomitant]
     Active Substance: APIXABAN
  14. PROTONIX [Concomitant]
     Active Substance: PANTOPRAZOLE SODIUM

REACTIONS (3)
  - Abdominal pain upper [None]
  - Vomiting [None]
  - Pain [None]

NARRATIVE: CASE EVENT DATE: 20170402
